FAERS Safety Report 6250755-9 (Version None)
Quarter: 2009Q2

REPORT INFORMATION
  Report Type: 
  Country: None (occurrence: None)
  Receive Date: 20090630
  Receipt Date: 20080826
  Transmission Date: 20091009
  Serious: No
  Sender: FDA-Public Use
  Company Number: US-ABBOTT-08P-163-0472627-00

PATIENT
  Sex: Female

DRUGS (3)
  1. ZEMPLAR [Suspect]
     Indication: RENAL FAILURE
     Dates: start: 20080423, end: 20080721
  2. ERGOCALCIFEROL [Concomitant]
     Indication: DRUG USE FOR UNKNOWN INDICATION
     Dates: start: 20080101
  3. LEVOTHYROXINE SODIUM [Concomitant]
     Indication: HYPOTHYROIDISM
     Route: 048

REACTIONS (9)
  - BLOOD CALCIUM INCREASED [None]
  - BLOOD PARATHYROID HORMONE INCREASED [None]
  - FATIGUE [None]
  - FEELING ABNORMAL [None]
  - GASTROINTESTINAL INFECTION [None]
  - KIDNEY INFECTION [None]
  - LABORATORY TEST ABNORMAL [None]
  - NAUSEA [None]
  - VITAMIN D INCREASED [None]
